FAERS Safety Report 9801480 (Version 3)
Quarter: 2015Q3

REPORT INFORMATION
  Report Type: Spontaneous
  Country: US (occurrence: US)
  Receive Date: 20140107
  Receipt Date: 20150730
  Transmission Date: 20151125
  Serious: No
  Sender: FDA-Public Use
  Company Number: US-GILEAD-2010-0032954

PATIENT
  Age: 66 Year
  Sex: Male

DRUGS (2)
  1. COUMADIN [Concomitant]
     Active Substance: WARFARIN SODIUM
     Route: 048
     Dates: start: 20090831
  2. RANEXA [Suspect]
     Active Substance: RANOLAZINE
     Indication: ATRIAL FIBRILLATION

REACTIONS (1)
  - International normalised ratio increased [Recovered/Resolved]
